FAERS Safety Report 10184379 (Version 2)
Quarter: 2014Q2

REPORT INFORMATION
  Report Type: Report from Study
  Country: US (occurrence: US)
  Receive Date: 20140521
  Receipt Date: 20140613
  Transmission Date: 20141212
  Serious: Yes (Hospitalization)
  Sender: FDA-Public Use
  Company Number: US-AMGEN-USACT2014036301

PATIENT
  Age: 42 Year
  Sex: Female
  Weight: 106.3 kg

DRUGS (17)
  1. PEGFILGRASTIM [Suspect]
     Indication: INVASIVE DUCTAL BREAST CARCINOMA
     Dosage: 6 MG, UNK
     Route: 065
     Dates: start: 20140408
  2. PRILOSEC                           /00661201/ [Concomitant]
     Dosage: 20 MG, UNK
     Route: 048
     Dates: start: 20140408
  3. ZOFRAN                             /00955301/ [Concomitant]
     Dosage: 8-16 MG, UNK
     Dates: start: 20140407
  4. NYSTATIN [Concomitant]
     Dosage: 16 ML, UNK
     Route: 048
     Dates: start: 20140412, end: 20140422
  5. ADVIL                              /00109201/ [Concomitant]
     Dosage: 600 MG, UNK
     Route: 048
     Dates: start: 20140413, end: 20140413
  6. CELEXA                             /00582602/ [Concomitant]
     Dosage: 20 MG, UNK
     Route: 048
     Dates: start: 20140424
  7. IMODIUM AD [Concomitant]
     Dosage: 2 MG, UNK
     Route: 048
     Dates: start: 20140410
  8. CIPRO                              /00697201/ [Concomitant]
     Dosage: 1000 MG, UNK
     Route: 048
     Dates: start: 20140414, end: 20140505
  9. EMEND                              /01627301/ [Concomitant]
     Dosage: 150 MG, UNK
     Route: 042
     Dates: start: 20140407
  10. DECADRON                           /00016001/ [Concomitant]
     Dosage: 12 MG, UNK
     Route: 042
     Dates: start: 20140407
  11. COMPAZINE                          /00013302/ [Concomitant]
     Dosage: 10 MG, UNK
     Route: 048
     Dates: start: 20140407
  12. ATIVAN [Concomitant]
     Dosage: 1-2 MG, UNK
     Route: 061
     Dates: start: 20140407
  13. BENADRYL                           /00000402/ [Concomitant]
     Dosage: 12.5 MG, UNK
     Route: 061
     Dates: start: 20140407
  14. HALDOL                             /00027401/ [Concomitant]
     Dosage: 1 MG, UNK
     Route: 061
     Dates: start: 20140407
  15. DOXORUBICIN [Concomitant]
     Dosage: 126-128 MG, UNK
     Dates: start: 20140407
  16. CYCLOPHOSPHAMIDE [Concomitant]
     Dosage: 1240-1280 MG, UNK
     Dates: start: 20140407
  17. AMBIEN [Concomitant]
     Route: 048
     Dates: start: 20140505

REACTIONS (1)
  - Pulmonary embolism [Not Recovered/Not Resolved]
